FAERS Safety Report 9002749 (Version 1)
Quarter: 2013Q1

REPORT INFORMATION
  Report Type: Spontaneous
  Country: US (occurrence: US)
  Receive Date: 20130107
  Receipt Date: 20130107
  Transmission Date: 20140127
  Serious: No
  Sender: FDA-Public Use
  Company Number: US-GLAXOSMITHKLINE-A0998575A

PATIENT
  Age: 31 Year
  Sex: Female
  Weight: 64.5 kg

DRUGS (2)
  1. BENLYSTA [Suspect]
     Indication: PRODUCT USED FOR UNKNOWN INDICATION
     Dates: start: 20121008, end: 20121008
  2. NO CONCURRENT MEDICATION [Concomitant]

REACTIONS (4)
  - Accidental exposure to product [Recovered/Resolved]
  - Pruritus [Unknown]
  - Chest discomfort [Unknown]
  - Respiratory disorder [Unknown]
